FAERS Safety Report 7979771-3 (Version None)
Quarter: 2011Q4

REPORT INFORMATION
  Report Type: 
  Country: None (occurrence: None)
  Receive Date: 20111214
  Receipt Date: 20111205
  Transmission Date: 20120403
  Serious: Yes (Other)
  Sender: FDA-Public Use
  Company Number: JP-ROCHE-773681

PATIENT
  Sex: Female

DRUGS (19)
  1. ACTEMRA [Suspect]
     Route: 041
     Dates: start: 20080918, end: 20080918
  2. ACTEMRA [Suspect]
     Route: 041
     Dates: start: 20081211, end: 20081211
  3. ACTEMRA [Suspect]
     Route: 041
     Dates: start: 20090703, end: 20100820
  4. ISONIAZID [Concomitant]
     Route: 048
  5. ACTEMRA [Suspect]
     Route: 041
     Dates: start: 20080717, end: 20080717
  6. ACTEMRA [Suspect]
     Route: 041
     Dates: start: 20090205, end: 20090205
  7. PREDNISOLONE [Concomitant]
     Route: 048
     Dates: start: 20080731, end: 20080821
  8. SERMION [Concomitant]
     Indication: AFFECTIVE DISORDER
     Route: 048
  9. ACTEMRA [Suspect]
     Indication: RHEUMATOID ARTHRITIS
     Route: 041
     Dates: start: 20080619, end: 20080619
  10. ACTEMRA [Suspect]
     Route: 041
     Dates: start: 20080821, end: 20080821
  11. AZULFIDINE [Concomitant]
     Indication: RHEUMATOID ARTHRITIS
     Route: 048
  12. ACTEMRA [Suspect]
     Route: 041
     Dates: start: 20081113, end: 20081113
  13. PREDNISOLONE [Concomitant]
     Indication: RHEUMATOID ARTHRITIS
     Route: 048
  14. METHOTREXATE [Concomitant]
     Indication: RHEUMATOID ARTHRITIS
     Route: 048
  15. ACTEMRA [Suspect]
     Route: 041
  16. VITAMEDIN [Concomitant]
     Indication: MEDICAL DIET
     Route: 048
  17. FAMOTIDINE [Concomitant]
     Indication: DYSMENORRHOEA
     Route: 048
  18. ACTEMRA [Suspect]
     Route: 041
     Dates: start: 20081016, end: 20081016
  19. ALENDRONATE SODIUM [Concomitant]
     Indication: OSTEOPOROSIS
     Route: 048

REACTIONS (2)
  - HAEMOPTYSIS [None]
  - LUMBAR SPINAL STENOSIS [None]
